FAERS Safety Report 14185713 (Version 1)
Quarter: 2017Q4

REPORT INFORMATION
  Report Type: Spontaneous
  Country: US (occurrence: None)
  Receive Date: 20171112
  Receipt Date: 20171112
  Transmission Date: 20180321
  Serious: No
  Sender: FDA-Public Use
  Company Number: None

PATIENT
  Age: 33 Year
  Sex: Female

DRUGS (1)
  1. COPAXONE [Suspect]
     Active Substance: GLATIRAMER ACETATE
     Indication: MULTIPLE SCLEROSIS
     Dosage: FREQUENCY - Q3D
     Route: 058
     Dates: start: 20170305, end: 20170401

REACTIONS (4)
  - Thirst [None]
  - Visual impairment [None]
  - Neck pain [None]
  - Feeling drunk [None]

NARRATIVE: CASE EVENT DATE: 20170305
